FAERS Safety Report 20042653 (Version 1)
Quarter: 2021Q4

REPORT INFORMATION
  Report Type: Spontaneous
  Country: US (occurrence: US)
  Receive Date: 20211108
  Receipt Date: 20211108
  Transmission Date: 20220303
  Serious: Yes (Other)
  Sender: FDA-Public Use
  Company Number: US-GLAXOSMITHKLINE-US2021GSK229431

PATIENT
  Sex: Female

DRUGS (14)
  1. ZANTAC [Suspect]
     Active Substance: RANITIDINE HYDROCHLORIDE
     Indication: Dyspepsia
     Dosage: 75 MG, QD(TOOK 75 MORE)(SOMETINES 2XDAILY)
     Route: 065
     Dates: start: 201701, end: 201901
  2. ZANTAC [Suspect]
     Active Substance: RANITIDINE HYDROCHLORIDE
     Dosage: 150 MG, QD(SOMETINES 2XDAILY)
     Route: 065
     Dates: start: 201701, end: 201901
  3. ZANTAC [Suspect]
     Active Substance: RANITIDINE HYDROCHLORIDE
     Indication: Dyspepsia
     Dosage: 75 MG, QD(TOOK 75 MORE)(SOMETIMES 2XDAILY)
     Route: 065
     Dates: start: 201701, end: 201901
  4. ZANTAC [Suspect]
     Active Substance: RANITIDINE HYDROCHLORIDE
     Dosage: 150 MG, QD(SOMETIMES 2XDAILY)
     Route: 065
     Dates: start: 201701, end: 201901
  5. RANITIDINE HYDROCHLORIDE [Suspect]
     Active Substance: RANITIDINE HYDROCHLORIDE
     Indication: Dyspepsia
     Dosage: 75 MG, QD(TOOK 75 MOE)(SOMETIMES 2XDAILY)
     Route: 065
     Dates: start: 201701, end: 201901
  6. RANITIDINE HYDROCHLORIDE [Suspect]
     Active Substance: RANITIDINE HYDROCHLORIDE
     Dosage: 150 MG, QD(SOMETIMES 2XDAILY)
     Route: 065
     Dates: start: 201701, end: 201901
  7. RANITIDINE HYDROCHLORIDE [Suspect]
     Active Substance: RANITIDINE HYDROCHLORIDE
     Indication: Dyspepsia
     Dosage: 75 MG, QD(TOOK 75 MORE)(SOMTEIMES 2XDAILY)
     Route: 065
     Dates: start: 201701, end: 201901
  8. RANITIDINE HYDROCHLORIDE [Suspect]
     Active Substance: RANITIDINE HYDROCHLORIDE
     Dosage: 150 MG, QD(SOMTEIMES 2XDAILY)
     Route: 065
     Dates: start: 201701, end: 201901
  9. ZANTAC [Suspect]
     Active Substance: RANITIDINE HYDROCHLORIDE
     Indication: Dyspepsia
     Dosage: 75 MG, QD(TOOK 75 MORE)(SOMTIMES 2XDAILY)
     Route: 065
     Dates: start: 201701, end: 201901
  10. ZANTAC [Suspect]
     Active Substance: RANITIDINE HYDROCHLORIDE
     Dosage: 150 MG, QD(SOMTIMES 2XDAILY)
     Route: 065
     Dates: start: 201701, end: 201901
  11. RANITIDINE [Suspect]
     Active Substance: RANITIDINE
     Indication: Dyspepsia
     Dosage: 75 MG, QD(TOOK 75 MORE)(SOMETIMES 2XDAILY)
     Route: 065
     Dates: start: 201701, end: 201901
  12. RANITIDINE [Suspect]
     Active Substance: RANITIDINE
     Dosage: 150 MG, QD(SOMETIMES 2XDAILY)
     Route: 065
     Dates: start: 201701, end: 201901
  13. RANITIDINE [Suspect]
     Active Substance: RANITIDINE
     Indication: Dyspepsia
     Dosage: 75 MG, QD(TOOK 75 MORE)(SOMETIMES 2XDAILY)
     Route: 065
     Dates: start: 201701, end: 201901
  14. RANITIDINE [Suspect]
     Active Substance: RANITIDINE
     Dosage: 150 MG, QD(SOMETIMES 2XDAILY)
     Route: 065
     Dates: start: 201701, end: 201901

REACTIONS (1)
  - Breast cancer [Unknown]
